FAERS Safety Report 6092268-3 (Version None)
Quarter: 2009Q1

REPORT INFORMATION
  Report Type: 
  Country: None (occurrence: None)
  Receive Date: 20090225
  Receipt Date: 20090223
  Transmission Date: 20090719
  Serious: Yes (Hospitalization, Other)
  Sender: FDA-Public Use
  Company Number: B0549968A

PATIENT
  Age: 2 Year
  Sex: Male
  Weight: 12 kg

DRUGS (4)
  1. SAWACILLIN [Suspect]
     Indication: NASOPHARYNGITIS
     Dosage: 150MG PER DAY
     Route: 048
     Dates: start: 20071221, end: 20071221
  2. ALESION [Concomitant]
     Dates: start: 20071221, end: 20071224
  3. MUCODYNE [Concomitant]
     Dates: start: 20071221, end: 20071224
  4. SPIROPENT [Concomitant]
     Dates: start: 20071221, end: 20071224

REACTIONS (8)
  - ACUTE GENERALISED EXANTHEMATOUS PUSTULOSIS [None]
  - DERMATITIS EXFOLIATIVE [None]
  - PSORIASIS [None]
  - PUSTULAR PSORIASIS [None]
  - PYREXIA [None]
  - RASH [None]
  - RASH PUSTULAR [None]
  - SUBCORNEAL PUSTULAR DERMATOSIS [None]
